FAERS Safety Report 7755739-7 (Version None)
Quarter: 2011Q3

REPORT INFORMATION
  Report Type: 
  Country: None (occurrence: None)
  Receive Date: 20110916
  Receipt Date: 20110909
  Transmission Date: 20111222
  Serious: Yes (Other)
  Sender: FDA-Public Use
  Company Number: PHEH2011US02879

PATIENT
  Sex: Female
  Weight: 113.38 kg

DRUGS (6)
  1. GILENYA [Suspect]
     Indication: MULTIPLE SCLEROSIS
     Dosage: 0.5 MG, QD
     Route: 048
     Dates: start: 20110628
  2. SYMBICORT [Concomitant]
     Dosage: BUDESONIDE - 80 MCG, FORMOTEROL FUMARATE-4.5 MCG/ACT
  3. ORTHO-NOVUM [Concomitant]
     Indication: CONTRACEPTION
     Dosage: UNK
  4. LYRICA [Concomitant]
     Dosage: 2 DF, BID
  5. AMANTADINE HCL [Concomitant]
     Dosage: 100 MG, BID
  6. NUVIGIL [Concomitant]
     Dosage: 150 MG, QD

REACTIONS (9)
  - VISUAL FIELD DEFECT [None]
  - BLOOD PRESSURE INCREASED [None]
  - BLINDNESS UNILATERAL [None]
  - CHEST PAIN [None]
  - MULTIPLE SCLEROSIS RELAPSE [None]
  - VISUAL ACUITY REDUCED [None]
  - HEART RATE INCREASED [None]
  - VISION BLURRED [None]
  - DIZZINESS [None]
